FAERS Safety Report 9531188 (Version 2)
Quarter: 2013Q3

REPORT INFORMATION
  Report Type: Spontaneous
  Country: FR (occurrence: FR)
  Receive Date: 20130918
  Receipt Date: 20130918
  Transmission Date: 20140515
  Serious: Yes (Other)
  Sender: FDA-Public Use
  Company Number: FR-SANOFI-AVENTIS-BMS17307877

PATIENT
  Age: 63 Year
  Sex: Male

DRUGS (8)
  1. COAPROVEL TABS [Suspect]
     Indication: HYPERTENSION
     Route: 048
  2. METFORMIN HYDROCHLORIDE [Suspect]
     Indication: TYPE 2 DIABETES MELLITUS
     Route: 048
  3. CRESTOR [Suspect]
     Indication: HYPERCHOLESTEROLAEMIA
     Dosage: CRESTOR FILM-COATED TAB
     Route: 048
     Dates: start: 200606
  4. JANUMET [Suspect]
     Indication: TYPE 2 DIABETES MELLITUS
     Dosage: 1DF= 1DOSE?FORMULATION-JANUMET 50 MG/1000 MG, FILM-COATED TABLET
     Route: 048
     Dates: start: 20101209
  5. APIDRA [Suspect]
     Indication: TYPE 2 DIABETES MELLITUS
     Route: 058
  6. LANTUS [Suspect]
     Indication: TYPE 2 DIABETES MELLITUS
     Route: 058
  7. AMLODIPINE [Suspect]
     Indication: HYPERTENSION
     Route: 048
  8. KARDEGIC [Suspect]
     Indication: PRODUCT USED FOR UNKNOWN INDICATION
     Route: 048

REACTIONS (3)
  - Tendon disorder [Recovered/Resolved]
  - Tendon rupture [Recovered/Resolved]
  - Fall [Unknown]
